FAERS Safety Report 15661445 (Version 3)
Quarter: 2020Q3

REPORT INFORMATION
  Report Type: Spontaneous
  Country: US (occurrence: US)
  Receive Date: 20181127
  Receipt Date: 20200831
  Transmission Date: 20201102
  Serious: Yes (Death, Hospitalization, Other)
  Sender: FDA-Public Use
  Company Number: US-GILEAD-2018-0376064

PATIENT
  Age: 38 Year
  Sex: Male

DRUGS (50)
  1. ATRIPLA [Suspect]
     Active Substance: EFAVIRENZ\EMTRICITABINE\TENOFOVIR DISOPROXIL FUMARATE
     Indication: HIV INFECTION
     Dosage: UNK
     Route: 048
     Dates: start: 20111221, end: 20120120
  2. DOXYCYCLINE HYCLATE. [Concomitant]
     Active Substance: DOXYCYCLINE HYCLATE
     Indication: BACTERIAL INFECTION
     Dosage: UNK
     Route: 065
     Dates: start: 20111024, end: 20111123
  3. TRAMADOL. [Concomitant]
     Active Substance: TRAMADOL
  4. PAROXETINE. [Concomitant]
     Active Substance: PAROXETINE
     Indication: DEPRESSION
     Dosage: UNK
     Route: 065
     Dates: start: 201703, end: 20191125
  5. PAROXETINE. [Concomitant]
     Active Substance: PAROXETINE
     Dosage: UNK
     Route: 065
     Dates: start: 20080327, end: 20081025
  6. TRAZODONE [Concomitant]
     Active Substance: TRAZODONE HYDROCHLORIDE
     Indication: ANXIETY
     Dosage: UNK
     Route: 065
     Dates: start: 20101118, end: 20110312
  7. METFORMIN [Concomitant]
     Active Substance: METFORMIN HYDROCHLORIDE
     Indication: TYPE 2 DIABETES MELLITUS
     Dosage: UNK
     Route: 065
     Dates: start: 20190813, end: 20191125
  8. DIAZEPAM. [Concomitant]
     Active Substance: DIAZEPAM
     Indication: DEPRESSION
     Dosage: UNK
     Route: 065
     Dates: start: 20070423, end: 20090112
  9. HYDROXYZINE [Concomitant]
     Active Substance: HYDROXYZINE HYDROCHLORIDE
     Indication: DEPRESSION
  10. ERYTHROMYCIN. [Concomitant]
     Active Substance: ERYTHROMYCIN
     Indication: BACTERIAL INFECTION
     Dosage: UNK
     Route: 065
     Dates: start: 20111001, end: 20111005
  11. LIDOCAINE VISCOUS [Concomitant]
     Active Substance: LIDOCAINE HYDROCHLORIDE
  12. LORTAB [HYDROCODONE BITARTRATE;PARACETAMOL;PROMETHAZINE HYDROCHLORIDE] [Concomitant]
     Active Substance: ACETAMINOPHEN\HYDROCODONE\PROMETHAZINE
  13. DESCOVY [Concomitant]
     Active Substance: EMTRICITABINE\TENOFOVIR ALAFENAMIDE FUMARATE
     Indication: HIV INFECTION
     Dosage: UNK
     Route: 065
     Dates: start: 20180628, end: 20180628
  14. SYMTUZA [Concomitant]
     Active Substance: COBICISTAT\DARUNAVIR\EMTRICITABINE\TENOFOVIR ALAFENAMIDE
     Indication: HIV INFECTION
     Route: 065
  15. PROMETHAZINE ? CODEINE [CODEINE PHOSPHATE;PROMETHAZINE HYDROCHLORIDE] [Concomitant]
     Indication: HYPERSENSITIVITY
     Dosage: UNK
     Route: 065
     Dates: start: 20080328, end: 20080924
  16. BUSPIRONE [Concomitant]
     Active Substance: BUSPIRONE HYDROCHLORIDE
     Indication: DEPRESSION
  17. TEMAZEPAM. [Concomitant]
     Active Substance: TEMAZEPAM
     Indication: ANXIETY
     Dosage: UNK
     Route: 065
     Dates: start: 20080502, end: 20080622
  18. TEMAZEPAM. [Concomitant]
     Active Substance: TEMAZEPAM
     Indication: DEPRESSION
  19. VALIUM [Concomitant]
     Active Substance: DIAZEPAM
     Indication: ANXIETY
     Route: 065
  20. TRAZODONE [Concomitant]
     Active Substance: TRAZODONE HYDROCHLORIDE
     Dosage: UNK
     Route: 065
     Dates: start: 20080327, end: 20090112
  21. OMEPRAZOLE. [Concomitant]
     Active Substance: OMEPRAZOLE
     Indication: GASTROOESOPHAGEAL REFLUX DISEASE
     Route: 065
  22. SUSTIVA [Concomitant]
     Active Substance: EFAVIRENZ
     Indication: HIV INFECTION
  23. BUPROPION. [Concomitant]
     Active Substance: BUPROPION
     Indication: ANXIETY
     Dosage: UNK
     Route: 065
  24. BUPROPION. [Concomitant]
     Active Substance: BUPROPION
     Indication: DEPRESSION
  25. ADVAIR HFA [Concomitant]
     Active Substance: FLUTICASONE PROPIONATE\SALMETEROL XINAFOATE
     Indication: ASTHMA
     Route: 065
  26. METOPROLOL SUCCINATE. [Concomitant]
     Active Substance: METOPROLOL SUCCINATE
  27. PAROXETINE. [Concomitant]
     Active Substance: PAROXETINE
     Dosage: UNK
     Route: 065
     Dates: start: 20070328, end: 20071226
  28. GABAPENTIN. [Concomitant]
     Active Substance: GABAPENTIN
     Indication: PAIN
  29. CLONAZEPAM. [Concomitant]
     Active Substance: CLONAZEPAM
     Indication: ANXIETY
     Dosage: UNK
     Route: 065
     Dates: start: 20101108, end: 20110206
  30. JARDIANCE [Concomitant]
     Active Substance: EMPAGLIFLOZIN
  31. CHLORHEX [Concomitant]
     Active Substance: CHLORHEXIDINE GLUCONATE
  32. PREZCOBIX [Concomitant]
     Active Substance: COBICISTAT\DARUNAVIR ETHANOLATE
     Indication: HIV INFECTION
     Dosage: UNK
     Route: 065
     Dates: start: 20180628, end: 20180628
  33. COMBIVIR [Concomitant]
     Active Substance: LAMIVUDINE\ZIDOVUDINE
     Indication: HIV INFECTION
     Route: 065
  34. ALBUTEROL [SALBUTAMOL] [Concomitant]
     Active Substance: ALBUTEROL
     Indication: ASTHMA
  35. DIAZEPAM. [Concomitant]
     Active Substance: DIAZEPAM
     Indication: ANXIETY
     Dosage: UNK
     Dates: start: 20101213, end: 20110411
  36. VALIUM [Concomitant]
     Active Substance: DIAZEPAM
     Indication: DEPRESSION
  37. AMOXICILLIN. [Concomitant]
     Active Substance: AMOXICILLIN
     Indication: BACTERIAL INFECTION
     Dosage: UNK
     Route: 065
     Dates: start: 20120501, end: 20120522
  38. PAROXETINE. [Concomitant]
     Active Substance: PAROXETINE
     Indication: ANXIETY
     Dosage: UNK
     Route: 065
     Dates: start: 20101110, end: 20110112
  39. TRAZODONE [Concomitant]
     Active Substance: TRAZODONE HYDROCHLORIDE
     Indication: DEPRESSION
     Dosage: UNK
     Route: 065
     Dates: start: 201703, end: 20191125
  40. MELOXICAM. [Concomitant]
     Active Substance: MELOXICAM
     Indication: INFLAMMATION
  41. BUSPIRONE [Concomitant]
     Active Substance: BUSPIRONE HYDROCHLORIDE
     Indication: ANXIETY
  42. HYDROXYZINE [Concomitant]
     Active Substance: HYDROXYZINE HYDROCHLORIDE
     Indication: ANXIETY
     Route: 065
  43. ONDANSETRON [Concomitant]
     Active Substance: ONDANSETRON
  44. STRIBILD [Suspect]
     Active Substance: COBICISTAT\ELVITEGRAVIR\EMTRICITABINE\TENOFOVIR DISOPROXIL FUMARATE
     Indication: HIV INFECTION
     Dosage: UNK
     Route: 048
     Dates: start: 2016, end: 2018
  45. PAROXETINE. [Concomitant]
     Active Substance: PAROXETINE
     Dosage: UNK
     Dates: start: 20091230, end: 20100115
  46. TRAZODONE [Concomitant]
     Active Substance: TRAZODONE HYDROCHLORIDE
     Dosage: UNK
     Route: 065
     Dates: start: 20091220, end: 20100119
  47. VALACYCLOVIR [Concomitant]
     Active Substance: VALACYCLOVIR HYDROCHLORIDE
     Indication: ANTIVIRAL TREATMENT
     Dosage: UNK
     Route: 065
     Dates: start: 20111221, end: 20120307
  48. EMPAGLIFLOZIN [Concomitant]
     Active Substance: EMPAGLIFLOZIN
  49. ACYCLOVIR [ACICLOVIR SODIUM] [Concomitant]
     Active Substance: ACYCLOVIR
  50. MULTIVITAMINS [VITAMINS NOS] [Concomitant]
     Active Substance: VITAMINS

REACTIONS (7)
  - Acute kidney injury [Fatal]
  - Anxiety [Not Recovered/Not Resolved]
  - Anhedonia [Not Recovered/Not Resolved]
  - Emotional distress [Not Recovered/Not Resolved]
  - Pain [Not Recovered/Not Resolved]
  - Bone density decreased [Not Recovered/Not Resolved]
  - Economic problem [Unknown]

NARRATIVE: CASE EVENT DATE: 2018
